FAERS Safety Report 9679345 (Version 1)
Quarter: 2013Q4

REPORT INFORMATION
  Report Type: Spontaneous
  Country: US (occurrence: US)
  Receive Date: 20131109
  Receipt Date: 20131109
  Transmission Date: 20140711
  Serious: No
  Sender: FDA-Public Use
  Company Number: US-SANOFI-AVENTIS-2013SA010132

PATIENT
  Age: 64 Year
  Sex: Female

DRUGS (4)
  1. ALLEGRA-D, 24 HR [Suspect]
     Indication: HYPERSENSITIVITY
     Dosage: 180MG/240MG
  2. ALLEGRA-D, 12 HR [Suspect]
     Indication: HYPERSENSITIVITY
     Dosage: 180MG/240MG
  3. AUGMENTIN [Concomitant]
  4. MEDROL [Concomitant]

REACTIONS (1)
  - Drug ineffective [Unknown]
